FAERS Safety Report 16307663 (Version 1)
Quarter: 2019Q2

REPORT INFORMATION
  Report Type: Spontaneous
  Country: US (occurrence: US)
  Receive Date: 20190514
  Receipt Date: 20190514
  Transmission Date: 20190711
  Serious: Yes (Hospitalization, Other)
  Sender: FDA-Public Use
  Company Number: US-AUROBINDO-AUR-APL-2019-025532

PATIENT

DRUGS (3)
  1. PREDNISONE. [Suspect]
     Active Substance: PREDNISONE
     Indication: IMMUNOSUPPRESSANT DRUG THERAPY
     Dosage: UNK, LOW DOSE PREDNISONE
     Route: 065
  2. EVEROLIMUS. [Suspect]
     Active Substance: EVEROLIMUS
     Indication: IMMUNOSUPPRESSANT DRUG THERAPY
     Dosage: UNK
     Route: 065
  3. TACROLIMUS. [Suspect]
     Active Substance: TACROLIMUS
     Indication: IMMUNOSUPPRESSANT DRUG THERAPY
     Dosage: UNK
     Route: 065

REACTIONS (8)
  - Thyroid gland abscess [Recovering/Resolving]
  - Dyspnoea [Recovering/Resolving]
  - Hyperthyroidism [Recovering/Resolving]
  - Neck pain [Recovered/Resolved]
  - Dysphagia [Recovering/Resolving]
  - Pulmonary mass [Recovering/Resolving]
  - Oropharyngeal pain [Recovering/Resolving]
  - Infectious thyroiditis [Recovering/Resolving]
